FAERS Safety Report 16724015 (Version 1)
Quarter: 2019Q3

REPORT INFORMATION
  Report Type: Spontaneous
  Country: US (occurrence: US)
  Receive Date: 20190820
  Receipt Date: 20190820
  Transmission Date: 20191005
  Serious: Yes (Death)
  Sender: FDA-Public Use
  Company Number: None

PATIENT
  Sex: Female

DRUGS (2)
  1. HUMIRA [Suspect]
     Active Substance: ADALIMUMAB
     Dates: start: 20190531
  2. HUMIRA [Suspect]
     Active Substance: ADALIMUMAB
     Dates: start: 20190531

REACTIONS (1)
  - Device defective [None]

NARRATIVE: CASE EVENT DATE: 20190820
